FAERS Safety Report 7349628-X (Version None)
Quarter: 2011Q1

REPORT INFORMATION
  Report Type: 
  Country: None (occurrence: None)
  Receive Date: 20110314
  Receipt Date: 20100629
  Transmission Date: 20110831
  Serious: No
  Sender: FDA-Public Use
  Company Number: A0811605A

PATIENT
  Age: 59 Year
  Sex: Female

DRUGS (2)
  1. NASONEX [Concomitant]
  2. AUGMENTIN '125' [Suspect]
     Indication: CHRONIC SINUSITIS
     Dosage: 875MG TWICE PER DAY
     Route: 048
     Dates: start: 20090901

REACTIONS (6)
  - DIARRHOEA [None]
  - FUNGAL INFECTION [None]
  - ANXIETY [None]
  - TINNITUS [None]
  - HYPERACUSIS [None]
  - INSOMNIA [None]
